FAERS Safety Report 9148226 (Version 1)
Quarter: 2013Q1

REPORT INFORMATION
  Report Type: Spontaneous
  Country: US (occurrence: US)
  Receive Date: 20130308
  Receipt Date: 20130308
  Transmission Date: 20140127
  Serious: No
  Sender: FDA-Public Use
  Company Number: US-BIOGENIDEC-2012BI006330

PATIENT
  Sex: Female

DRUGS (2)
  1. AVONEX [Suspect]
     Indication: MULTIPLE SCLEROSIS
     Route: 030
  2. AVONEX [Suspect]
     Indication: MULTIPLE SCLEROSIS
     Route: 030
     Dates: start: 20090717

REACTIONS (5)
  - Memory impairment [Not Recovered/Not Resolved]
  - Sinus disorder [Recovered/Resolved]
  - Depression [Unknown]
  - Pain in extremity [Unknown]
  - Fatigue [Recovered/Resolved]
